FAERS Safety Report 9725687 (Version 1)
Quarter: 2013Q4

REPORT INFORMATION
  Report Type: Spontaneous
  Country: US (occurrence: None)
  Receive Date: 20131127
  Receipt Date: 20131127
  Transmission Date: 20140711
  Serious: Yes (Other)
  Sender: FDA-Public Use
  Company Number: AUR-APL-2013-09803

PATIENT
  Age: 84 Year
  Sex: Male

DRUGS (7)
  1. CARVEDILOL (CARVEDILOL) [Suspect]
     Indication: CARDIAC DISORDER
     Dosage: 37.5 MG (18.75 M, 2 IN 1 D), UNKNOWN
  2. POTASSIUM CHLORIDE (POTASSIUM CHLORIDE) [Suspect]
     Indication: CARDIAC DISORDER
     Dosage: 40 MG (20 MG, 2 IN 1 D), UNKNOWN
  3. FUROSEMIDE (FUROSEMIDE) [Suspect]
     Dosage: 40 MG (20 MG, 1 IN 1 D), UNKNOWN
  4. COREG (CARVEDILOL) [Suspect]
     Indication: CARDIAC DISORDER
     Dosage: 25 MG (12.5 MG, 2 IN 1 D), UNKNOWN
  5. ASPIRIN (ACETYLSALICYLIC ACID) [Suspect]
     Indication: ANTICOAGULANT THERAPY
     Dosage: 325 MG (325 MG, 1 IN 1 D), UNKNOWN
  6. IMDUR [Suspect]
     Indication: CARDIAC DISORDER
     Dosage: 60 MG (60 MG, 1 IN 1 D), UNKNOWN
  7. PREPARATION H [Suspect]
     Indication: HAEMORRHOIDS

REACTIONS (4)
  - Dysstasia [None]
  - Cardiac disorder [None]
  - Burning sensation [None]
  - Drug interaction [None]
